FAERS Safety Report 21635022 (Version 1)
Quarter: 2022Q4

REPORT INFORMATION
  Report Type: Report from Study
  Country: US (occurrence: US)
  Receive Date: 20221123
  Receipt Date: 20221123
  Transmission Date: 20230113
  Serious: No
  Sender: FDA-Public Use
  Company Number: US-ABBVIE-4209212

PATIENT
  Sex: Male

DRUGS (1)
  1. IMBRUVICA [Suspect]
     Active Substance: IBRUTINIB
     Indication: Chronic lymphocytic leukaemia
     Route: 048
     Dates: start: 20221103

REACTIONS (6)
  - Nasal congestion [Unknown]
  - Oral mucosal blistering [Unknown]
  - Skin exfoliation [Unknown]
  - Blood pressure increased [Unknown]
  - Blister [Unknown]
  - Dry skin [Unknown]
